FAERS Safety Report 8178522-X (Version None)
Quarter: 2012Q1

REPORT INFORMATION
  Report Type: 
  Country: None (occurrence: None)
  Receive Date: 20120301
  Receipt Date: 20120227
  Transmission Date: 20120608
  Serious: Yes (Death)
  Sender: FDA-Public Use
  Company Number: PHHY2012DK016564

PATIENT
  Sex: Male

DRUGS (3)
  1. SULFASALAZINE [Concomitant]
     Dosage: UNK
     Dates: start: 20050422, end: 20090908
  2. METHOTREXATE [Suspect]
     Route: 048
     Dates: start: 20060215, end: 20090908
  3. REMICADE [Suspect]
     Dosage: 200 MG, IN WEEK 0, 2, 6 AND 8
     Dates: start: 20090618, end: 20090804

REACTIONS (2)
  - METASTATIC NEOPLASM [None]
  - SMALL CELL LUNG CANCER STAGE UNSPECIFIED [None]
